FAERS Safety Report 14239531 (Version 4)
Quarter: 2018Q2

REPORT INFORMATION
  Report Type: Spontaneous
  Country: CA (occurrence: CA)
  Receive Date: 20171130
  Receipt Date: 20180402
  Transmission Date: 20180711
  Serious: Yes (Hospitalization, Other)
  Sender: FDA-Public Use
  Company Number: CA-TEVA-2017-CA-828912

PATIENT
  Age: 39 Year
  Sex: Female

DRUGS (2)
  1. SPIRONOLACTONE. [Suspect]
     Active Substance: SPIRONOLACTONE
     Indication: ACNE
  2. SPIRONOLACTONE. [Suspect]
     Active Substance: SPIRONOLACTONE
     Indication: SEBORRHOEA
     Dosage: 50 MILLIGRAM DAILY; ONE IN MORNING ONE IN EVENING
     Route: 065
     Dates: start: 201711, end: 20171115

REACTIONS (15)
  - Post-traumatic stress disorder [Not Recovered/Not Resolved]
  - Suicide attempt [Unknown]
  - Agitation [Recovered/Resolved]
  - Impaired work ability [Unknown]
  - Suicidal ideation [Recovered/Resolved]
  - Disturbance in attention [Recovered/Resolved]
  - Anger [Recovered/Resolved]
  - Mania [Recovered/Resolved]
  - Anxiety [Recovered/Resolved]
  - Crying [Recovered/Resolved]
  - Panic attack [Not Recovered/Not Resolved]
  - Feeling abnormal [Recovered/Resolved]
  - Restlessness [Recovered/Resolved]
  - Thinking abnormal [Recovered/Resolved]
  - Emotional distress [Recovered/Resolved]

NARRATIVE: CASE EVENT DATE: 201711
